FAERS Safety Report 8158958-3 (Version None)
Quarter: 2012Q1

REPORT INFORMATION
  Report Type: 
  Country: None (occurrence: None)
  Receive Date: 20120223
  Receipt Date: 20120220
  Transmission Date: 20120608
  Serious: No
  Sender: FDA-Public Use
  Company Number: US-BAYER-2012-017046

PATIENT
  Sex: Female

DRUGS (1)
  1. BEYAZ [Suspect]
     Dosage: UNK

REACTIONS (4)
  - POLYMENORRHOEA [None]
  - INFECTIOUS MONONUCLEOSIS [None]
  - STRESS [None]
  - HYPOMENORRHOEA [None]
